FAERS Safety Report 19494521 (Version 1)
Quarter: 2021Q3

REPORT INFORMATION
  Report Type: Spontaneous
  Country: GB (occurrence: GB)
  Receive Date: 20210705
  Receipt Date: 20210705
  Transmission Date: 20211014
  Serious: Yes (Other)
  Sender: FDA-Public Use
  Company Number: NVSC2021GB140201

PATIENT
  Age: 65 Year
  Sex: Female

DRUGS (1)
  1. BEOVU [Suspect]
     Active Substance: BROLUCIZUMAB-DBLL
     Indication: NEOVASCULAR AGE-RELATED MACULAR DEGENERATION
     Dosage: UNK (6 MG INJECTION; 120MG IN 1ML (RIGHT EYE))
     Route: 050
     Dates: start: 20210524

REACTIONS (12)
  - Vision blurred [Unknown]
  - Choroidal neovascularisation [Unknown]
  - Dennie-Morgan fold [Unknown]
  - Blindness unilateral [Not Recovered/Not Resolved]
  - Iris adhesions [Unknown]
  - Retinal neovascularisation [Unknown]
  - Eye inflammation [Unknown]
  - Visual acuity reduced [Unknown]
  - Uveitis [Not Recovered/Not Resolved]
  - Ocular hyperaemia [Unknown]
  - Cataract subcapsular [Unknown]
  - Vitreous opacities [Unknown]

NARRATIVE: CASE EVENT DATE: 20210609
